FAERS Safety Report 4811546-6 (Version None)
Quarter: 2005Q4

REPORT INFORMATION
  Report Type: 
  Country: None (occurrence: None)
  Receive Date: 20051025
  Receipt Date: 20051012
  Transmission Date: 20060501
  Serious: No
  Sender: FDA-Public Use
  Company Number: 05H-167-0303220-00

PATIENT
  Sex: Male

DRUGS (2)
  1. GENTAMICIN SULFATE [Suspect]
     Indication: PSEUDOMONAS INFECTION
  2. CEFTAZIDIME SODIUM [Suspect]
     Indication: PSEUDOMONAS INFECTION

REACTIONS (3)
  - HYPERSENSITIVITY [None]
  - NEPHRITIS INTERSTITIAL [None]
  - RENAL FAILURE ACUTE [None]
